FAERS Safety Report 11460884 (Version 1)
Quarter: 2015Q3

REPORT INFORMATION
  Report Type: Report from Study
  Country: US (occurrence: US)
  Receive Date: 20150904
  Receipt Date: 20150904
  Transmission Date: 20151125
  Serious: No
  Sender: FDA-Public Use
  Company Number: PHEH2015US001036

PATIENT
  Age: 56 Year

DRUGS (6)
  1. DILANTIN SODIUM [Concomitant]
     Active Substance: PHENYTOIN SODIUM
     Dosage: 3 OT, QD (3 A DAY )
     Route: 065
     Dates: start: 20150420
  2. PHENOBARBITAL. [Concomitant]
     Active Substance: PHENOBARBITAL
     Indication: PRODUCT USED FOR UNKNOWN INDICATION
     Route: 065
  3. AFINITOR [Suspect]
     Active Substance: EVEROLIMUS
     Indication: ANGIOMYOLIPOMA
     Dosage: 5.0 MG, DAILY
     Route: 048
     Dates: start: 20150105
  4. SODIUM POLYSTYRENE SULFONATE. [Concomitant]
     Active Substance: SODIUM POLYSTYRENE SULFONATE
     Indication: PRODUCT USED FOR UNKNOWN INDICATION
     Route: 065
  5. DILANTIN SODIUM [Concomitant]
     Active Substance: PHENYTOIN SODIUM
     Indication: PRODUCT USED FOR UNKNOWN INDICATION
     Dosage: UNK
     Route: 065
  6. ALLEGRA M [Concomitant]
     Indication: PRODUCT USED FOR UNKNOWN INDICATION
     Dosage: UNK UNK, PRN
     Route: 065

REACTIONS (8)
  - Laboratory test abnormal [Unknown]
  - Muscular weakness [Unknown]
  - Drug level increased [Unknown]
  - Cough [Unknown]
  - Acne [Unknown]
  - Pruritus [Unknown]
  - Bedridden [Unknown]
  - Ligament sprain [Unknown]

NARRATIVE: CASE EVENT DATE: 20150112
